FAERS Safety Report 10515864 (Version 2)
Quarter: 2014Q4

REPORT INFORMATION
  Report Type: Spontaneous
  Country: US (occurrence: US)
  Receive Date: 20141014
  Receipt Date: 20141016
  Transmission Date: 20150528
  Serious: Yes (Hospitalization, Other)
  Sender: FDA-Public Use
  Company Number: US-PFIZER INC-2014278273

PATIENT
  Age: 66 Year
  Sex: Male
  Weight: 113.38 kg

DRUGS (2)
  1. SUTENT [Suspect]
     Active Substance: SUNITINIB MALATE
     Indication: RENAL CELL CARCINOMA
  2. SUTENT [Suspect]
     Active Substance: SUNITINIB MALATE
     Indication: RENAL CELL CARCINOMA
     Dosage: 50 MG, ONE PER DAY FOR 28 DAYS, OFF OF IT 14 DAYS
     Dates: start: 20140830, end: 20140923

REACTIONS (8)
  - Platelet count decreased [Unknown]
  - Asthenia [Recovered/Resolved]
  - White blood cell count decreased [Unknown]
  - Gastrointestinal haemorrhage [Recovered/Resolved]
  - Haemoglobin decreased [Unknown]
  - Haematuria [Recovered/Resolved]
  - Blood test abnormal [Unknown]
  - Hypertension [Recovered/Resolved]

NARRATIVE: CASE EVENT DATE: 20140915
